FAERS Safety Report 5719352-5 (Version None)
Quarter: 2008Q2

REPORT INFORMATION
  Report Type: 
  Country: None (occurrence: None)
  Receive Date: 20080428
  Receipt Date: 20080418
  Transmission Date: 20081010
  Serious: Yes (Hospitalization)
  Sender: FDA-Public Use
  Company Number: VE-ABBOTT-08P-178-0433737-00

PATIENT
  Sex: Female
  Weight: 63 kg

DRUGS (2)
  1. HUMIRA 40 MG/ 0.8 ML PRE-FILLED SYRINGE [Suspect]
     Indication: RHEUMATOID ARTHRITIS
     Route: 058
     Dates: start: 20070918, end: 20071201
  2. HUMIRA 40 MG/ 0.8 ML PRE-FILLED SYRINGE [Suspect]
     Dosage: 40MG/0.8ML (TOTAL DAILY DOSE)
     Route: 058
     Dates: start: 20080318

REACTIONS (3)
  - HAEMORRHAGIC STROKE [None]
  - HYPERTENSIVE CRISIS [None]
  - SUBDURAL HAEMATOMA [None]
